FAERS Safety Report 26079948 (Version 2)
Quarter: 2025Q4

REPORT INFORMATION
  Report Type: Report from Study
  Country: US (occurrence: US)
  Receive Date: 20251123
  Receipt Date: 20251128
  Transmission Date: 20260118
  Serious: Yes (Other)
  Sender: ABBVIE
  Company Number: US-ABBVIE-6557799

PATIENT
  Age: 79 Year
  Sex: Female

DRUGS (1)
  1. SKYRIZI [Suspect]
     Active Substance: RISANKIZUMAB-RZAA
     Indication: Psoriasis
     Route: 058

REACTIONS (7)
  - Staphylococcal infection [Unknown]
  - Knee operation [Unknown]
  - Fall [Unknown]
  - Hip fracture [Unknown]
  - Arthritis infective [Unknown]
  - Rash [Unknown]
  - Gait disturbance [Recovering/Resolving]
